FAERS Safety Report 21297991 (Version 1)
Quarter: 2022Q3

REPORT INFORMATION
  Report Type: Spontaneous
  Country: ES (occurrence: ES)
  Receive Date: 20220906
  Receipt Date: 20220906
  Transmission Date: 20221026
  Serious: Yes (Other)
  Sender: FDA-Public Use
  Company Number: None

PATIENT
  Age: 43 Year
  Sex: Male

DRUGS (3)
  1. DIAZEPAM [Interacting]
     Active Substance: DIAZEPAM
     Indication: Anxiety
     Route: 050
     Dates: start: 20220811, end: 20220811
  2. DISULFIRAM [Interacting]
     Active Substance: DISULFIRAM
     Indication: Alcohol abuse
     Route: 050
     Dates: start: 20220603
  3. CYMBALTA 60 MG CAPSULAS DURAS GASTRORRESISTENTES, 28 capsulas [Concomitant]
     Indication: Depression
     Route: 050
     Dates: start: 20220610

REACTIONS (5)
  - Psychomotor skills impaired [Recovered/Resolved]
  - Dysarthria [Recovered/Resolved]
  - Dysuria [Recovered/Resolved]
  - Amnesia [Recovered/Resolved]
  - Hypersomnia [Recovered/Resolved]

NARRATIVE: CASE EVENT DATE: 20220811
